FAERS Safety Report 9026763 (Version 2)
Quarter: 2013Q2

REPORT INFORMATION
  Report Type: Spontaneous
  Country: US (occurrence: US)
  Receive Date: 20130123
  Receipt Date: 20130515
  Transmission Date: 20140414
  Serious: Yes (Hospitalization)
  Sender: FDA-Public Use
  Company Number: US-BAYER-2013-007258

PATIENT
  Age: 45 Year
  Sex: Female
  Weight: 53.06 kg

DRUGS (10)
  1. YAZ [Suspect]
     Indication: CONTRACEPTION
     Dosage: UNK
     Dates: start: 20070927, end: 201006
  2. YAZ [Suspect]
     Indication: MENORRHAGIA
  3. GIANVI [Suspect]
     Indication: CONTRACEPTION
     Dosage: UNK
     Dates: start: 20100619, end: 201101
  4. IBUPROFEN [Concomitant]
     Indication: ANALGESIC THERAPY
  5. ALEVE [Concomitant]
     Indication: ANALGESIC THERAPY
  6. ALEVE [Concomitant]
     Indication: HEADACHE
  7. ACETAMINOPHEN [Concomitant]
     Indication: HEADACHE
  8. ACETAMINOPHEN [Concomitant]
     Indication: ANALGESIC THERAPY
  9. NAPROXEN [Concomitant]
     Indication: HEADACHE
  10. NAPROXEN [Concomitant]
     Indication: ANALGESIC THERAPY

REACTIONS (9)
  - Thrombophlebitis superficial [None]
  - Deep vein thrombosis [None]
  - Injury [None]
  - Pain [None]
  - Emotional distress [None]
  - Depression [None]
  - Fear of death [None]
  - Nervousness [None]
  - Pain in extremity [None]
